FAERS Safety Report 14892853 (Version 1)
Quarter: 2018Q2

REPORT INFORMATION
  Report Type: Spontaneous
  Country: TR (occurrence: TR)
  Receive Date: 20180514
  Receipt Date: 20180514
  Transmission Date: 20180711
  Serious: Yes (Other)
  Sender: FDA-Public Use
  Company Number: TR-TEVA-2018-TR-890936

PATIENT
  Sex: Male
  Weight: 73 kg

DRUGS (1)
  1. MODIODAL [Suspect]
     Active Substance: MODAFINIL
     Dosage: MODIODAL 100 MG TABLET
     Route: 048
     Dates: start: 20180315

REACTIONS (5)
  - Pruritus [Recovered/Resolved with Sequelae]
  - Joint swelling [Recovered/Resolved with Sequelae]
  - Swelling face [Recovered/Resolved with Sequelae]
  - Peripheral swelling [Recovered/Resolved with Sequelae]
  - Erythema [Recovered/Resolved with Sequelae]
